FAERS Safety Report 11046170 (Version 1)
Quarter: 2015Q2

REPORT INFORMATION
  Report Type: Spontaneous
  Country: US (occurrence: US)
  Receive Date: 20150418
  Receipt Date: 20150418
  Transmission Date: 20150821
  Serious: No
  Sender: FDA-Public Use
  Company Number: US-B.I. PHARMACEUTICALS,INC./RIDGEFIELD-2015-BI-18379BP

PATIENT
  Age: 76 Year
  Sex: Female
  Weight: 48 kg

DRUGS (1)
  1. COMBIVENT [Suspect]
     Active Substance: ALBUTEROL SULFATE\IPRATROPIUM BROMIDE
     Indication: CHRONIC OBSTRUCTIVE PULMONARY DISEASE
     Dosage: DOSE PER APPLICATION AND DAILY DOSE: 20 MCG / 100 MCG;
     Route: 055
     Dates: start: 20150403

REACTIONS (1)
  - Sputum retention [Not Recovered/Not Resolved]

NARRATIVE: CASE EVENT DATE: 20150403
